FAERS Safety Report 10439905 (Version 3)
Quarter: 2014Q3

REPORT INFORMATION
  Report Type: Spontaneous
  Country: TW (occurrence: None)
  Receive Date: 20140905
  Receipt Date: 20140922
  Transmission Date: 20150326
  Serious: Yes (Hospitalization, Other)
  Sender: FDA-Public Use
  Company Number: UNT-2014-006441

PATIENT
  Age: 58 Year
  Sex: Female
  Weight: 58 kg

DRUGS (1)
  1. REMODULIN [Suspect]
     Active Substance: TREPROSTINIL
     Indication: PULMONARY ARTERIAL HYPERTENSION
     Dosage: 0.062 ?G/KG, PUMP RATE OF 4.3 U/HR, SUBCUTANEOUS
     Route: 058
     Dates: start: 20140717, end: 20140828

REACTIONS (5)
  - Multi-organ failure [None]
  - Generalised oedema [None]
  - Dyspnoea [None]
  - Renal failure acute [None]
  - Pyelonephritis [None]

NARRATIVE: CASE EVENT DATE: 20140814
